FAERS Safety Report 4566764-1 (Version None)
Quarter: 2005Q1

REPORT INFORMATION
  Report Type: 
  Country: None (occurrence: None)
  Receive Date: 20050201
  Receipt Date: 20011002
  Transmission Date: 20050727
  Serious: Yes (Other)
  Sender: FDA-Public Use
  Company Number: US-BRISTOL-MYERS SQUIBB COMPANY-11525243

PATIENT
  Age: 55 Year
  Sex: Female

DRUGS (14)
  1. STADOL [Suspect]
     Route: 045
  2. PROMETHAZINE [Concomitant]
  3. HYDROCODONE + ACETAMINOPHEN [Concomitant]
  4. LODINE XL [Concomitant]
  5. AMITRIPTYLINE HCL [Concomitant]
  6. BENZONATATE [Concomitant]
  7. HYDROXYZINE PAMOATE [Concomitant]
  8. LONOX [Concomitant]
  9. CLONAZEPAM [Concomitant]
  10. PROZAC [Concomitant]
  11. OXYIR [Concomitant]
  12. CYCLOBENZAPRINE [Concomitant]
  13. ZANAFLEX [Concomitant]
  14. VICOPROFEN [Concomitant]

REACTIONS (2)
  - DEPENDENCE [None]
  - DRUG WITHDRAWAL SYNDROME [None]
